FAERS Safety Report 9945473 (Version 1)
Quarter: 2014Q1

REPORT INFORMATION
  Report Type: Report from Study
  Country: US (occurrence: US)
  Receive Date: 20140303
  Receipt Date: 20140303
  Transmission Date: 20141002
  Serious: No
  Sender: FDA-Public Use
  Company Number: US-ABBVIE-13P-163-1050644-00

PATIENT
  Age: 54 Year
  Sex: Female

DRUGS (15)
  1. HUMIRA [Suspect]
     Indication: PSORIATIC ARTHROPATHY
  2. DEPAKOTE [Concomitant]
     Indication: BIPOLAR DISORDER
  3. LEVOXYL [Concomitant]
     Indication: THYROID DISORDER
  4. OMEPRAZOLE [Concomitant]
     Indication: GASTROOESOPHAGEAL REFLUX DISEASE
  5. PIOGLITAZONE [Concomitant]
     Indication: DIABETES MELLITUS
  6. ZOLPIDEM [Concomitant]
     Indication: INSOMNIA
     Dosage: HOUR OF SLEEP
  7. LATUDA [Concomitant]
     Indication: BIPOLAR DISORDER
  8. KLONOPIN [Concomitant]
     Indication: BIPOLAR DISORDER
  9. MULTIPLE VITAMINS [Concomitant]
     Indication: PRODUCT USED FOR UNKNOWN INDICATION
     Dosage: DAILY
  10. CLOTRIMAZOLE/BETAMETHASONE [Concomitant]
     Indication: PSORIASIS
  11. FISH OIL [Concomitant]
     Indication: PRODUCT USED FOR UNKNOWN INDICATION
  12. KRILL OMEGA RED OIL [Concomitant]
     Indication: PRODUCT USED FOR UNKNOWN INDICATION
  13. TUMS [Concomitant]
     Indication: PRODUCT USED FOR UNKNOWN INDICATION
  14. TYLENOL [Concomitant]
     Indication: PRODUCT USED FOR UNKNOWN INDICATION
  15. LISINOPRIL [Concomitant]
     Indication: RENAL DISORDER
     Dosage: 1/2 TAB DAILY

REACTIONS (2)
  - Mania [Unknown]
  - Agitation [Unknown]
